FAERS Safety Report 8457383-5 (Version None)
Quarter: 2012Q2

REPORT INFORMATION
  Report Type: 
  Country: None (occurrence: None)
  Receive Date: 20120621
  Receipt Date: 20120614
  Transmission Date: 20120825
  Serious: No
  Sender: FDA-Public Use
  Company Number: US-PFIZER INC-2012143391

PATIENT
  Sex: Female
  Weight: 81.633 kg

DRUGS (14)
  1. TRAMADOL HYDROCHLORIDE [Concomitant]
     Dosage: 50 MG
  2. DOXYCYCLINE HYCLATE [Suspect]
     Dosage: UNK
  3. NEXIUM [Concomitant]
     Dosage: 20 MG, UNK
  4. CELEBREX [Concomitant]
     Dosage: 50 MG
  5. PULMICORT [Concomitant]
     Dosage: 180 UG
  6. STOOL SOFTENER [Concomitant]
     Dosage: 240 MG
  7. CARDIZEM [Concomitant]
     Dosage: 60 MG
  8. CRESTOR [Concomitant]
     Dosage: 5 MG, UNK
  9. NASONEX [Concomitant]
     Dosage: 50 UG
  10. LEVOTHROID [Concomitant]
     Dosage: 100 UG
  11. COZAAR [Concomitant]
     Dosage: 50 MG, UNK
  12. ACETYLSALICYLIC ACID [Concomitant]
     Dosage: 81 MG
  13. CETIRIZINE HCL AND PSEUDOEPHEDRINE [Concomitant]
     Dosage: 120 MG
  14. METFORMIN [Concomitant]
     Dosage: 60 MG, UNK

REACTIONS (1)
  - DRUG HYPERSENSITIVITY [None]
